FAERS Safety Report 5645754-1 (Version None)
Quarter: 2008Q1

REPORT INFORMATION
  Report Type: 
  Country: None (occurrence: None)
  Receive Date: 20080229
  Receipt Date: 20080219
  Transmission Date: 20080703
  Serious: Yes (Hospitalization)
  Sender: FDA-Public Use
  Company Number: US-ABBOTT-08P-163-0439020-00

PATIENT
  Sex: Female
  Weight: 63.106 kg

DRUGS (2)
  1. TRICOR [Suspect]
     Indication: BLOOD CHOLESTEROL INCREASED
     Route: 048
     Dates: start: 20080205, end: 20080207
  2. TRICOR [Suspect]
     Dosage: A 48MG TABLET CUT IN HALF
     Route: 048
     Dates: start: 20080208, end: 20080209

REACTIONS (7)
  - BACK PAIN [None]
  - CHEST DISCOMFORT [None]
  - CORONARY ARTERY OCCLUSION [None]
  - MUSCULOSKELETAL PAIN [None]
  - MYALGIA [None]
  - PAIN IN EXTREMITY [None]
  - PALPITATIONS [None]
